FAERS Safety Report 5223376-4 (Version None)
Quarter: 2007Q1

REPORT INFORMATION
  Report Type: 
  Country: None (occurrence: None)
  Receive Date: 20061201
  Receipt Date: 20060823
  Transmission Date: 20070707
  Serious: No
  Sender: FDA-Public Use
  Company Number: 2006PV016726

PATIENT
  Age: 50 Year
  Sex: Male
  Weight: 90.7194 kg

DRUGS (4)
  1. BYETTA [Suspect]
     Indication: DIABETES MELLITUS NON-INSULIN-DEPENDENT
     Dosage: 10 MCG;BID;SC : 5 MCG;BID;SC
     Route: 058
     Dates: start: 20060628, end: 20060101
  2. BYETTA [Suspect]
     Indication: DIABETES MELLITUS NON-INSULIN-DEPENDENT
     Dosage: 10 MCG;BID;SC : 5 MCG;BID;SC
     Route: 058
     Dates: start: 20060101
  3. METFORMIN HCL [Concomitant]
  4. GLUCOPHAGE [Concomitant]

REACTIONS (6)
  - BLOOD GLUCOSE ABNORMAL [None]
  - BLOOD GLUCOSE DECREASED [None]
  - COUGH [None]
  - DECREASED APPETITE [None]
  - FEELING ABNORMAL [None]
  - SOMNOLENCE [None]
